FAERS Safety Report 12548667 (Version 1)
Quarter: 2016Q3

REPORT INFORMATION
  Report Type: Spontaneous
  Country: US (occurrence: US)
  Receive Date: 20160712
  Receipt Date: 20160712
  Transmission Date: 20161109
  Serious: No
  Sender: FDA-Public Use
  Company Number: US-TEVA-644181USA

PATIENT
  Sex: Female

DRUGS (1)
  1. LAMOTRIGINE. [Suspect]
     Active Substance: LAMOTRIGINE
     Indication: BIPOLAR DISORDER
     Dosage: 200 MILLIGRAM DAILY;
     Route: 065

REACTIONS (5)
  - Depression [Unknown]
  - Activities of daily living impaired [Recovered/Resolved]
  - Product substitution issue [Not Recovered/Not Resolved]
  - Tremor [Unknown]
  - Crying [Unknown]

NARRATIVE: CASE EVENT DATE: 2009
